FAERS Safety Report 8345406-3 (Version None)
Quarter: 2012Q2

REPORT INFORMATION
  Report Type: 
  Country: None (occurrence: None)
  Receive Date: 20120508
  Receipt Date: 20120503
  Transmission Date: 20120825
  Serious: Yes (Other)
  Sender: FDA-Public Use
  Company Number: GB-PFIZER INC-2012079133

PATIENT
  Age: 41 Year
  Sex: Male
  Weight: 79 kg

DRUGS (6)
  1. ACETYLSALICYLIC ACID [Concomitant]
  2. VARENICLINE TARTRATE [Suspect]
     Indication: SMOKING CESSATION THERAPY
     Dosage: 1 MG, 2X/DAY
     Route: 048
     Dates: start: 20120303, end: 20120320
  3. ATORVASTATIN [Concomitant]
  4. BISOPROLOL [Concomitant]
  5. SITAGLIPTIN [Concomitant]
  6. METFORMIN [Concomitant]

REACTIONS (2)
  - ERYTHEMA MULTIFORME [None]
  - URTICARIA PAPULAR [None]
